FAERS Safety Report 10417574 (Version 1)
Quarter: 2014Q3

REPORT INFORMATION
  Report Type: Spontaneous
  Country: US (occurrence: None)
  Receive Date: 20140828
  Receipt Date: 20140828
  Transmission Date: 20150326
  Serious: Yes (Death, Hospitalization)
  Sender: FDA-Public Use
  Company Number: None

PATIENT
  Age: 72 Year
  Sex: Female
  Weight: 77.9 kg

DRUGS (1)
  1. TOPOTECAN [Suspect]
     Active Substance: TOPOTECAN\TOPOTECAN HYDROCHLORIDE
     Dates: end: 20130518

REACTIONS (5)
  - Lung infiltration [None]
  - Vomiting [None]
  - Pancreatitis acute [None]
  - Pancytopenia [None]
  - Abdominal pain [None]

NARRATIVE: CASE EVENT DATE: 20130522
